FAERS Safety Report 25976395 (Version 1)
Quarter: 2025Q4

REPORT INFORMATION
  Report Type: Spontaneous
  Country: None (occurrence: JP)
  Receive Date: 20251029
  Receipt Date: 20251029
  Transmission Date: 20260117
  Serious: Yes (Other)
  Sender: AURINIA PHARMACEUTICALS
  Company Number: JP-MMM-Otsuka-PBF9NWTV

PATIENT
  Age: 66 Year

DRUGS (2)
  1. LUPKYNIS [Suspect]
     Active Substance: VOCLOSPORIN
     Indication: Lupus nephritis
     Dosage: 7.9 MILLIGRAM
  2. MYCOPHENOLATE MOFETIL [Suspect]
     Active Substance: MYCOPHENOLATE MOFETIL
     Indication: Product used for unknown indication
     Dosage: 2000 MILLIGRAM, QD

REACTIONS (4)
  - Cytomegalovirus enterocolitis [Recovering/Resolving]
  - Haematochezia [Unknown]
  - Renal impairment [Unknown]
  - Dehydration [Unknown]
